FAERS Safety Report 6346218-2 (Version None)
Quarter: 2009Q3

REPORT INFORMATION
  Report Type: 
  Country: None (occurrence: None)
  Receive Date: 20090909
  Receipt Date: 20090901
  Transmission Date: 20100115
  Serious: Yes (Congenital Anomaly)
  Sender: FDA-Public Use
  Company Number: US-B.I. PHARMACEUTICALS,INC./RIDGEFIELD-2009-DE-05779GD

PATIENT

DRUGS (1)
  1. CLONIDINE [Suspect]
     Route: 064

REACTIONS (1)
  - EBSTEIN'S ANOMALY [None]
